FAERS Safety Report 5125549-8 (Version None)
Quarter: 2006Q4

REPORT INFORMATION
  Report Type: 
  Country: None (occurrence: None)
  Receive Date: 20061006
  Receipt Date: 20060923
  Transmission Date: 20070319
  Serious: Yes (Other)
  Sender: FDA-Public Use
  Company Number: 2006S1009054

PATIENT
  Age: 63 Year
  Sex: Female

DRUGS (2)
  1. CARBIDOPA AND LEVODOPA EXTENDED -RELEASE TABLETS (25MG) [Suspect]
     Indication: PARKINSONISM
     Dosage: 125 MG; QD; PO
     Route: 048
  2. CARBIDOPA AND LEVODOPA [Suspect]
     Dosage: PO
     Route: 048

REACTIONS (6)
  - AGGRESSION [None]
  - DELUSION [None]
  - OVERDOSE [None]
  - PARANOIA [None]
  - PHARMACEUTICAL PRODUCT COMPLAINT [None]
  - TOXICOLOGIC TEST ABNORMAL [None]
